FAERS Safety Report 9406575 (Version 1)
Quarter: 2013Q3

REPORT INFORMATION
  Report Type: Spontaneous
  Country: IT (occurrence: IT)
  Receive Date: 20130718
  Receipt Date: 20130718
  Transmission Date: 20140515
  Serious: Yes (Hospitalization)
  Sender: FDA-Public Use
  Company Number: IT-JNJFOC-20130707055

PATIENT
  Age: 56 Year
  Sex: Female
  Weight: 70 kg

DRUGS (3)
  1. DOXORUBICIN HYDROCHLORIDE(CAELYX) [Suspect]
     Indication: BREAST CANCER
     Route: 042
     Dates: start: 20130409, end: 20130508
  2. CIPRALEX [Concomitant]
     Indication: DEPRESSION
     Route: 048
  3. LYRICA [Concomitant]
     Indication: NEURALGIA
     Route: 048

REACTIONS (4)
  - Palmar-plantar erythrodysaesthesia syndrome [Recovered/Resolved]
  - Injection site inflammation [Recovered/Resolved]
  - Stomatitis [Recovered/Resolved]
  - Injection site pain [Recovered/Resolved]
